FAERS Safety Report 24263351 (Version 2)
Quarter: 2024Q3

REPORT INFORMATION
  Report Type: Spontaneous
  Country: CO (occurrence: CO)
  Receive Date: 20240829
  Receipt Date: 20240903
  Transmission Date: 20241017
  Serious: Yes (Death, Hospitalization, Other)
  Sender: TAKEDA
  Company Number: CO-TAKEDA-2024TUS086760

PATIENT
  Sex: Male
  Weight: 72 kg

DRUGS (1)
  1. ICLUSIG [Suspect]
     Active Substance: PONATINIB\PONATINIB HYDROCHLORIDE
     Indication: Chronic myeloid leukaemia
     Dosage: 45 MILLIGRAM, QD
     Route: 048
     Dates: start: 20231127, end: 20240823

REACTIONS (14)
  - Cardiac arrest [Fatal]
  - Acute respiratory failure [Unknown]
  - Septic shock [Unknown]
  - Blast cell crisis [Unknown]
  - Tachyarrhythmia [Unknown]
  - Chronic myeloid leukaemia transformation [Unknown]
  - Bone marrow failure [Unknown]
  - Acute kidney injury [Unknown]
  - Hypotension [Unknown]
  - Sepsis [Unknown]
  - Atrial fibrillation [Unknown]
  - Febrile neutropenia [Unknown]
  - Dehydration [Unknown]
  - Anaemia [Unknown]
